FAERS Safety Report 19391329 (Version 7)
Quarter: 2023Q4

REPORT INFORMATION
  Report Type: Other
  Country: US (occurrence: None)
  Receive Date: 20210609
  Receipt Date: 20231218
  Transmission Date: 20240110
  Serious: Yes (Other)
  Sender: FDA-Public Use
  Company Number: US-ROCHE-2843463

PATIENT
  Age: 72 Year
  Sex: Male

DRUGS (24)
  1. ERIVEDGE [Suspect]
     Active Substance: VISMODEGIB
     Indication: Salivary gland cancer
     Dosage: DAILY 5 TIMES PER WEEK
     Route: 048
  2. ERIVEDGE [Suspect]
     Active Substance: VISMODEGIB
     Indication: Chronic spontaneous urticaria
     Dosage: TAKE 1 CAPSULE BY MOUTH EVERY OTHER DAY
     Route: 048
     Dates: start: 20231212
  3. LIPITOR [Concomitant]
     Active Substance: ATORVASTATIN CALCIUM
  4. CELEBREX [Concomitant]
     Active Substance: CELECOXIB
  5. VOLTAREN [Concomitant]
     Active Substance: DICLOFENAC SODIUM
  6. VIBRAMYCIN [Concomitant]
     Active Substance: DOXYCYCLINE
  7. FERROUS SULFATE [Concomitant]
     Active Substance: FERROUS SULFATE
  8. ALLEGRA [Concomitant]
     Active Substance: FEXOFENADINE HYDROCHLORIDE
  9. PROZAC [Concomitant]
     Active Substance: FLUOXETINE HYDROCHLORIDE
  10. NORCO [Concomitant]
     Active Substance: ACETAMINOPHEN\HYDROCODONE BITARTRATE
  11. EUTHYROX [Concomitant]
     Active Substance: LEVOTHYROXINE SODIUM
  12. ROBAXIN [Concomitant]
     Active Substance: METHOCARBAMOL
  13. BACTROBAN [Concomitant]
     Active Substance: MUPIROCIN CALCIUM
  14. PRILOSEC [Concomitant]
     Active Substance: OMEPRAZOLE MAGNESIUM
  15. FLOMAX [Concomitant]
     Active Substance: TAMSULOSIN HYDROCHLORIDE
  16. ATORVASTATIN [Concomitant]
     Active Substance: ATORVASTATIN
  17. FERROUS SULFATE [Concomitant]
     Active Substance: FERROUS SULFATE
  18. FEXOFENADINE HYDROCHLORIDE [Concomitant]
     Active Substance: FEXOFENADINE HYDROCHLORIDE
  19. HYDROCODONE [Concomitant]
     Active Substance: HYDROCODONE
  20. LEVOTHYROXINE [Concomitant]
     Active Substance: LEVOTHYROXINE
  21. METHOCARBAMOL [Concomitant]
     Active Substance: METHOCARBAMOL
  22. MUPIROCIN [Concomitant]
     Active Substance: MUPIROCIN
  23. OMEPRAZOLE [Concomitant]
     Active Substance: OMEPRAZOLE
  24. TAMSULOSIN [Concomitant]
     Active Substance: TAMSULOSIN

REACTIONS (4)
  - Neoplasm malignant [Unknown]
  - Bone cancer [Unknown]
  - Metastases to bone [Unknown]
  - Off label use [Unknown]
